FAERS Safety Report 23645073 (Version 2)
Quarter: 2024Q2

REPORT INFORMATION
  Report Type: Spontaneous
  Country: US (occurrence: US)
  Receive Date: 20240318
  Receipt Date: 20240529
  Transmission Date: 20240716
  Serious: Yes (Hospitalization, Other)
  Sender: FDA-Public Use
  Company Number: US-Calliditas-2024CAL00440

PATIENT
  Age: 74 Year
  Sex: Female

DRUGS (2)
  1. TARPEYO [Suspect]
     Active Substance: BUDESONIDE
     Indication: Chronic kidney disease
     Route: 048
     Dates: start: 20230922
  2. CALCITRIOL [Concomitant]
     Active Substance: CALCITRIOL

REACTIONS (5)
  - Pulmonary oedema [Unknown]
  - Cardiomegaly [Unknown]
  - Renal impairment [Unknown]
  - Off label use [Unknown]
  - Blood potassium decreased [Unknown]
